FAERS Safety Report 18814459 (Version 1)
Quarter: 2021Q1

REPORT INFORMATION
  Report Type: Spontaneous
  Country: CN (occurrence: CN)
  Receive Date: 20210201
  Receipt Date: 20210201
  Transmission Date: 20210419
  Serious: Yes (Hospitalization, Other)
  Sender: FDA-Public Use
  Company Number: CN-TOPROL-2021000013

PATIENT
  Age: 91 Year
  Sex: Female

DRUGS (1)
  1. BETALOC ZOK [Suspect]
     Active Substance: METOPROLOL SUCCINATE
     Indication: HEART RATE ABNORMAL
     Route: 048
     Dates: start: 20210112, end: 20210113

REACTIONS (9)
  - Tachypnoea [Unknown]
  - Blood pressure decreased [Recovering/Resolving]
  - Dyspnoea [Recovering/Resolving]
  - Asthenia [Not Recovered/Not Resolved]
  - Chest discomfort [Unknown]
  - Hyperhidrosis [Recovering/Resolving]
  - Arrhythmia [Recovered/Resolved]
  - Sinus bradycardia [Recovering/Resolving]
  - Palpitations [Recovering/Resolving]

NARRATIVE: CASE EVENT DATE: 20210112
